FAERS Safety Report 8050722-9 (Version None)
Quarter: 2012Q1

REPORT INFORMATION
  Report Type: 
  Country: None (occurrence: None)
  Receive Date: 20120117
  Receipt Date: 20120117
  Transmission Date: 20120608
  Serious: Yes (Hospitalization)
  Sender: FDA-Public Use
  Company Number: None

PATIENT
  Age: 56 Year
  Sex: Male

DRUGS (21)
  1. LOSARTAN POTASSIUM [Concomitant]
  2. NORVASC [Concomitant]
  3. LORATADINE [Concomitant]
  4. PERCOCET [Concomitant]
  5. METOCLOPRAMIDE [Suspect]
     Dosage: 5MG
     Route: 048
  6. CELEXA [Concomitant]
  7. NOVOLIN R [Concomitant]
  8. TRANSDERM SCOP [Concomitant]
  9. TOBRAMYCIN NEB [Concomitant]
  10. COREG [Concomitant]
  11. CONSTULOSE [Concomitant]
  12. LORAZEPAM [Concomitant]
  13. LANTUS [Concomitant]
  14. IPRATROPIUM BROMIDE [Concomitant]
  15. ALBUTEROL [Concomitant]
  16. ASPIRIN [Concomitant]
  17. DOCUSATE [Concomitant]
  18. PREVACID [Concomitant]
  19. ZOCOR [Concomitant]
  20. HYDRALAZINE HCL [Concomitant]
  21. BACLOFEN [Concomitant]

REACTIONS (1)
  - DYSTONIA [None]
